FAERS Safety Report 24261340 (Version 1)
Quarter: 2024Q3

REPORT INFORMATION
  Report Type: Spontaneous
  Country: US (occurrence: US)
  Receive Date: 20240829
  Receipt Date: 20240829
  Transmission Date: 20241017
  Serious: No
  Sender: BRISTOL MYERS SQUIBB
  Company Number: US-BRISTOL-MYERS SQUIBB COMPANY-2024-136271

PATIENT
  Age: 84 Year
  Sex: Male
  Weight: 42.64 kg

DRUGS (1)
  1. REVLIMID [Suspect]
     Active Substance: LENALIDOMIDE
     Indication: Anaemia of malignant disease
     Route: 048
     Dates: start: 20240730

REACTIONS (2)
  - Rash pruritic [Recovering/Resolving]
  - Off label use [Unknown]
